FAERS Safety Report 15254077 (Version 3)
Quarter: 2018Q4

REPORT INFORMATION
  Report Type: Report from Study
  Country: CO (occurrence: CO)
  Receive Date: 20180808
  Receipt Date: 20181115
  Transmission Date: 20190204
  Serious: Yes (Hospitalization, Other)
  Sender: FDA-Public Use
  Company Number: CO-ASTELLAS-2018US035165

PATIENT
  Age: 5 Year
  Sex: Female
  Weight: 19 kg

DRUGS (5)
  1. CERTICAN [Concomitant]
     Active Substance: EVEROLIMUS
     Indication: PRODUCT USED FOR UNKNOWN INDICATION
     Dosage: 0.5 (UNIT NOT REPORTED), EVERY 12 HOURS
     Route: 048
  2. URSACOL [Concomitant]
     Active Substance: URSODIOL
     Indication: PRODUCT USED FOR UNKNOWN INDICATION
     Route: 048
  3. PREDNISOLONE. [Concomitant]
     Active Substance: PREDNISOLONE
     Indication: PRODUCT USED FOR UNKNOWN INDICATION
     Dosage: HALF OF THE PILL, EVERY 12 HOURS
     Route: 048
  4. TACROLIMUS. [Suspect]
     Active Substance: TACROLIMUS
     Route: 048
  5. TACROLIMUS. [Suspect]
     Active Substance: TACROLIMUS
     Indication: LIVER TRANSPLANT
     Route: 048
     Dates: start: 20150413

REACTIONS (6)
  - Scleral discolouration [Recovering/Resolving]
  - Pyrexia [Not Recovered/Not Resolved]
  - Chromaturia [Recovering/Resolving]
  - Blood bilirubin increased [Recovering/Resolving]
  - Biliary tract disorder [Unknown]
  - Yellow skin [Recovering/Resolving]

NARRATIVE: CASE EVENT DATE: 201807
